FAERS Safety Report 4267190-5 (Version None)
Quarter: 2004Q1

REPORT INFORMATION
  Report Type: 
  Country: None (occurrence: None)
  Receive Date: 20040107
  Receipt Date: 20031222
  Transmission Date: 20041129
  Serious: Yes (Hospitalization)
  Sender: FDA-Public Use
  Company Number: F01200200218

PATIENT
  Age: 62 Year
  Sex: Male

DRUGS (7)
  1. OXALIPLATIN - SODIUM  - 245 MG [Suspect]
     Indication: COLORECTAL CANCER METASTATIC
     Dosage: 245 MG Q2W, INTRAVENOUS NOS
     Route: 042
     Dates: start: 20020305, end: 20020305
  2. FLUOROURACIL [Suspect]
     Dosage: 2275 MG AS 46 HOUR INFUSION,Q2W, INTRAVENOUS NOS
     Route: 042
     Dates: start: 20020305, end: 20020306
  3. LEUCOVORIN - SOLUTION - 760 MG [Suspect]
     Dosage: 760 MG, Q2W
     Route: 042
     Dates: start: 20020305, end: 20020305
  4. METOPROLOL [Concomitant]
  5. RAMIPRIL [Concomitant]
  6. ACETYLSALICYLIC ACID SRT [Concomitant]
  7. SIMVASTATIN [Concomitant]

REACTIONS (2)
  - ATRIAL FIBRILLATION [None]
  - TACHYCARDIA PAROXYSMAL [None]
